FAERS Safety Report 16774025 (Version 1)
Quarter: 2019Q3

REPORT INFORMATION
  Report Type: Report from Study
  Country: None (occurrence: US)
  Receive Date: 20190905
  Receipt Date: 20190905
  Transmission Date: 20191005
  Serious: Yes (Other)
  Sender: FDA-Public Use
  Company Number: US-ABBVIE-19K-163-2787413-00

PATIENT
  Sex: Female
  Weight: 63.56 kg

DRUGS (4)
  1. METHOTREXATE. [Concomitant]
     Active Substance: METHOTREXATE
     Indication: RHEUMATOID ARTHRITIS
  2. HUMIRA [Suspect]
     Active Substance: ADALIMUMAB
     Indication: RHEUMATOID ARTHRITIS
     Dosage: CITRATE FREE
     Route: 058
  3. HUMIRA [Suspect]
     Active Substance: ADALIMUMAB
     Route: 058
  4. PROZAC [Concomitant]
     Active Substance: FLUOXETINE HYDROCHLORIDE
     Indication: PRODUCT USED FOR UNKNOWN INDICATION

REACTIONS (9)
  - Lethargy [Unknown]
  - Injection site pain [Recovering/Resolving]
  - Rheumatoid arthritis [Unknown]
  - Limb injury [Unknown]
  - Feeling abnormal [Unknown]
  - Myalgia [Unknown]
  - Gingival recession [Unknown]
  - Skin lesion [Unknown]
  - Injection site urticaria [Recovering/Resolving]
